FAERS Safety Report 13404004 (Version 1)
Quarter: 2017Q2

REPORT INFORMATION
  Report Type: Spontaneous
  Country: US (occurrence: US)
  Receive Date: 20170405
  Receipt Date: 20170405
  Transmission Date: 20170830
  Serious: No
  Sender: FDA-Public Use
  Company Number: None

PATIENT

DRUGS (2)
  1. GABAPENTIN GABAPENTIN [Suspect]
     Active Substance: GABAPENTIN
  2. GABAPENTIN GABAPENTIN [Suspect]
     Active Substance: GABAPENTIN

REACTIONS (1)
  - Transcription medication error [None]
